FAERS Safety Report 24587065 (Version 10)
Quarter: 2025Q3

REPORT INFORMATION
  Report Type: Report from Study
  Country: CO (occurrence: CO)
  Receive Date: 20241107
  Receipt Date: 20250926
  Transmission Date: 20251021
  Serious: Yes (Disabling, Other)
  Sender: ROCHE
  Company Number: CO-002147023-NVSC2024CO150386

PATIENT
  Age: 29 Year
  Sex: Female
  Weight: 65 kg

DRUGS (24)
  1. XOLAIR [Suspect]
     Active Substance: OMALIZUMAB
     Indication: Chronic spontaneous urticaria
     Route: 058
     Dates: start: 202406
  2. XOLAIR [Suspect]
     Active Substance: OMALIZUMAB
     Indication: Urticaria chronic
     Dosage: 300 MG, QMO
     Route: 058
     Dates: start: 20240710
  3. XOLAIR [Suspect]
     Active Substance: OMALIZUMAB
     Route: 058
     Dates: start: 202407
  4. XOLAIR [Suspect]
     Active Substance: OMALIZUMAB
     Dosage: UNK (SECOND DOSE)
     Route: 058
  5. XOLAIR [Suspect]
     Active Substance: OMALIZUMAB
     Route: 058
     Dates: start: 202407
  6. XOLAIR [Suspect]
     Active Substance: OMALIZUMAB
     Route: 058
  7. XOLAIR [Suspect]
     Active Substance: OMALIZUMAB
     Route: 058
  8. XOLAIR [Suspect]
     Active Substance: OMALIZUMAB
     Route: 065
     Dates: start: 20250225
  9. XOLAIR [Suspect]
     Active Substance: OMALIZUMAB
     Route: 058
  10. VENLAFAXINE [Concomitant]
     Active Substance: VENLAFAXINE HYDROCHLORIDE
  11. VENLAFAXINE [Concomitant]
     Active Substance: VENLAFAXINE HYDROCHLORIDE
     Dosage: UNK, BID (IN THE MORNING AND AT NIGHT)
  12. VENLAFAXINE [Concomitant]
     Active Substance: VENLAFAXINE HYDROCHLORIDE
  13. PREGABALIN [Concomitant]
     Active Substance: PREGABALIN
     Indication: Anxiety
     Dosage: 100 MG, Q24H 25 MG IN THE MORNING 75 MG AT NIGHT
  14. PREGABALIN [Concomitant]
     Active Substance: PREGABALIN
     Indication: Pain
  15. PREGABALIN [Concomitant]
     Active Substance: PREGABALIN
     Indication: Insomnia
  16. PREGABALIN [Concomitant]
     Active Substance: PREGABALIN
     Dosage: 1 DOSAGE FORM, QD (1 OF 75 MG AT NIGHT)
  17. BILASTINE [Concomitant]
     Active Substance: BILASTINE
     Indication: Urticaria
     Route: 048
     Dates: start: 202402
  18. BILASTINE [Concomitant]
     Active Substance: BILASTINE
     Indication: Hypersensitivity
     Dosage: 20 MG, BID (2 IN THE MORNING AND 2 AT NIGHT)
  19. BILASTINE [Concomitant]
     Active Substance: BILASTINE
     Dosage: 40 MG, BID (2 / 40 MG, IN THE MORNIGN AND NIGHT)
  20. VITAMIN C [Concomitant]
     Active Substance: ASCORBIC ACID
     Indication: Product used for unknown indication
  21. VITAMIN C [Concomitant]
     Active Substance: ASCORBIC ACID
  22. VITAMIN D [Concomitant]
     Active Substance: VITAMIN D NOS
     Indication: Product used for unknown indication
  23. VITAMIN D [Concomitant]
     Active Substance: VITAMIN D NOS
  24. IRON [Concomitant]
     Active Substance: IRON
     Indication: Product used for unknown indication

REACTIONS (11)
  - Dyspnoea [Unknown]
  - Somnolence [Unknown]
  - Arthralgia [Unknown]
  - Headache [Unknown]
  - Weight increased [Unknown]
  - Blepharitis [Recovering/Resolving]
  - Urticaria [Recovered/Resolved]
  - Choking [Recovered/Resolved]
  - Joint swelling [Unknown]
  - Mouth swelling [Unknown]
  - Eye swelling [Unknown]

NARRATIVE: CASE EVENT DATE: 20240710
